FAERS Safety Report 9239972 (Version 1)
Quarter: 2013Q2

REPORT INFORMATION
  Report Type: Spontaneous
  Country: US (occurrence: US)
  Receive Date: 20130418
  Receipt Date: 20130418
  Transmission Date: 20140414
  Serious: Yes (Other)
  Sender: FDA-Public Use
  Company Number: US-GLAXOSMITHKLINE-A1000906A

PATIENT
  Age: 13 Year
  Sex: Male

DRUGS (11)
  1. FLOVENT [Suspect]
     Indication: EOSINOPHILIC OESOPHAGITIS
     Dosage: 3PUFF TWICE PER DAY
     Route: 048
     Dates: start: 201209
  2. ADVAIR [Suspect]
     Dosage: 1PUFF TWICE PER DAY
     Route: 055
  3. VITAMIN D [Concomitant]
  4. TUMS [Concomitant]
  5. OMEPRAZOLE [Concomitant]
  6. MULTIVITAMIN [Concomitant]
  7. AZELASTINE HYDROCHLORIDE [Concomitant]
  8. ALBUTEROL [Concomitant]
  9. COACTIFED + BECLOMETHASONE [Concomitant]
  10. ZYRTEC [Concomitant]
  11. AUGMENTIN [Concomitant]

REACTIONS (23)
  - Pharyngitis streptococcal [Not Recovered/Not Resolved]
  - Abdominal pain upper [Recovered/Resolved]
  - Pyrexia [Not Recovered/Not Resolved]
  - Initial insomnia [Not Recovered/Not Resolved]
  - Bone density decreased [Not Recovered/Not Resolved]
  - Weight increased [Not Recovered/Not Resolved]
  - Influenza like illness [Not Recovered/Not Resolved]
  - Pain [Not Recovered/Not Resolved]
  - Aggression [Not Recovered/Not Resolved]
  - Agitation [Unknown]
  - Psychomotor hyperactivity [Not Recovered/Not Resolved]
  - Disturbance in attention [Not Recovered/Not Resolved]
  - Abnormal behaviour [Unknown]
  - Feeling abnormal [Unknown]
  - Educational problem [Not Recovered/Not Resolved]
  - Fatigue [Not Recovered/Not Resolved]
  - Oropharyngeal pain [Unknown]
  - Headache [Not Recovered/Not Resolved]
  - Eosinophilic oesophagitis [Unknown]
  - White blood cell count increased [Unknown]
  - Ear infection [Not Recovered/Not Resolved]
  - Sinusitis [Not Recovered/Not Resolved]
  - Dyspnoea [Recovered/Resolved]
